FAERS Safety Report 9064031 (Version 1)
Quarter: 2013Q1

REPORT INFORMATION
  Report Type: Report from Study
  Country: US (occurrence: US)
  Receive Date: 20130131
  Receipt Date: 20130131
  Transmission Date: 20140127
  Serious: Yes (Other)
  Sender: FDA-Public Use
  Company Number: US-ABBOTT-12P-163-1003809-00

PATIENT
  Age: 39 Year
  Sex: Female
  Weight: 52.66 kg

DRUGS (1)
  1. HUMIRA [Suspect]
     Indication: CROHN^S DISEASE
     Dates: start: 200902

REACTIONS (5)
  - Hip arthroplasty [Unknown]
  - Peroneal nerve palsy [Unknown]
  - Nervous system disorder [Unknown]
  - Abdominal pain [Unknown]
  - Treatment noncompliance [Unknown]
